FAERS Safety Report 14224109 (Version 1)
Quarter: 2017Q4

REPORT INFORMATION
  Report Type: Spontaneous
  Country: PK (occurrence: PK)
  Receive Date: 20171125
  Receipt Date: 20171125
  Transmission Date: 20180321
  Serious: Yes (Disabling)
  Sender: FDA-Public Use
  Company Number: None

PATIENT
  Sex: Male
  Weight: 90 kg

DRUGS (5)
  1. LEVOCETIRIZINE [Concomitant]
     Active Substance: LEVOCETIRIZINE
  2. CQ-10 [Concomitant]
  3. MAXPAN-400 [Suspect]
     Active Substance: CEFIXIME
     Indication: TONSILLITIS
     Dosage: ?          QUANTITY:4 CAPSULE(S);?
     Route: 048
     Dates: start: 20171125, end: 201711
  4. DICLOFENAC POTASSIUM. [Concomitant]
     Active Substance: DICLOFENAC POTASSIUM
  5. ENSURE SUPPLEMENT [Concomitant]

REACTIONS (2)
  - Insomnia [None]
  - Paraesthesia [None]

NARRATIVE: CASE EVENT DATE: 20171125
